FAERS Safety Report 6455562-X (Version None)
Quarter: 2009Q4

REPORT INFORMATION
  Report Type: 
  Country: None (occurrence: None)
  Receive Date: 20091125
  Receipt Date: 20091116
  Transmission Date: 20100525
  Serious: Yes (Other)
  Sender: FDA-Public Use
  Company Number: TR-ABBOTT-09P-161-0608757-00

PATIENT
  Age: 40 Year
  Sex: Male
  Weight: 50 kg

DRUGS (1)
  1. HUMIRA [Suspect]
     Indication: ANKYLOSING SPONDYLITIS
     Route: 058
     Dates: start: 20090828, end: 20090916

REACTIONS (2)
  - CARDIAC FAILURE [None]
  - EJECTION FRACTION DECREASED [None]
